FAERS Safety Report 5825869-5 (Version None)
Quarter: 2008Q3

REPORT INFORMATION
  Report Type: 
  Country: None (occurrence: None)
  Receive Date: 20080729
  Receipt Date: 20080721
  Transmission Date: 20090109
  Serious: Yes (Hospitalization)
  Sender: FDA-Public Use
  Company Number: BR-ROCHE-577394

PATIENT
  Age: 18 Year
  Sex: Male
  Weight: 65 kg

DRUGS (4)
  1. RIVOTRIL [Suspect]
     Indication: DEPRESSION
     Dosage: THE PATIENT TOOK 40 DOES FORM
     Route: 048
     Dates: start: 20080719, end: 20080719
  2. RIVOTRIL [Suspect]
     Route: 048
     Dates: start: 20080101, end: 20080201
  3. RIVOTRIL [Suspect]
     Route: 048
     Dates: start: 20080501
  4. RIVOTRIL [Suspect]
     Route: 048

REACTIONS (5)
  - DIZZINESS [None]
  - FALL [None]
  - MEDICATION ERROR [None]
  - SOMNOLENCE [None]
  - SYNCOPE [None]
